FAERS Safety Report 8005873-1 (Version None)
Quarter: 2011Q4

REPORT INFORMATION
  Report Type: 
  Country: None (occurrence: None)
  Receive Date: 20111223
  Receipt Date: 20111220
  Transmission Date: 20120403
  Serious: Yes (Life-Threatening)
  Sender: FDA-Public Use
  Company Number: RU-ASTRAZENECA-2011SE76871

PATIENT
  Age: 52 Year
  Sex: Female

DRUGS (1)
  1. NAROPIN [Suspect]
     Indication: INFILTRATION ANAESTHESIA
     Route: 050
     Dates: start: 20111220

REACTIONS (1)
  - CIRCULATORY COLLAPSE [None]
